FAERS Safety Report 25097857 (Version 1)
Quarter: 2025Q1

REPORT INFORMATION
  Report Type: Spontaneous
  Country: FR (occurrence: FR)
  Receive Date: 20250320
  Receipt Date: 20250320
  Transmission Date: 20250409
  Serious: Yes (Other)
  Sender: AUROBINDO
  Company Number: FR-AFSSAPS-NY2025000246

PATIENT
  Age: 77 Year
  Sex: Female
  Weight: 68 kg

DRUGS (3)
  1. OFLOXACIN [Interacting]
     Active Substance: OFLOXACIN
     Indication: Gastrointestinal disorder
     Dosage: 1 DOSAGE FORM, TWO TIMES A DAY (1 TABLET MORNING AND EVENING)
     Route: 048
     Dates: start: 20241114, end: 20241119
  2. PREDNISONE [Interacting]
     Active Substance: PREDNISONE
     Indication: Giant cell arteritis
     Dosage: 15 MILLIGRAM, ONCE A DAY
     Route: 048
     Dates: start: 20240201
  3. METRONIDAZOLE [Concomitant]
     Active Substance: METRONIDAZOLE
     Indication: Gastrointestinal disorder
     Dosage: 500 MILLIGRAM, TWO TIMES A DAY
     Route: 048

REACTIONS (2)
  - Enthesopathy [Not Recovered/Not Resolved]
  - Labelled drug-drug interaction issue [Recovered/Resolved]

NARRATIVE: CASE EVENT DATE: 20241114
